FAERS Safety Report 22244908 (Version 5)
Quarter: 2023Q4

REPORT INFORMATION
  Report Type: Spontaneous
  Country: US (occurrence: US)
  Receive Date: 20230424
  Receipt Date: 20231226
  Transmission Date: 20240110
  Serious: No
  Sender: FDA-Public Use
  Company Number: US-Calliditas-2023CAL00394

PATIENT
  Age: 52 Year
  Sex: Male

DRUGS (12)
  1. TARPEYO [Suspect]
     Active Substance: BUDESONIDE
     Indication: IgA nephropathy
     Dosage: 16MG (4MG CAPSULES) ONCE DAILY
     Route: 048
     Dates: start: 20220526
  2. CALCITRIOL [Concomitant]
     Active Substance: CALCITRIOL
  3. METOPROLOL TARTRATE [Concomitant]
     Active Substance: METOPROLOL TARTRATE
     Dosage: 100 MG BID
  4. HYDRALAZINE [Concomitant]
     Active Substance: HYDRALAZINE HYDROCHLORIDE
     Dosage: 100 MG TID ; TIME INTERVAL:
  5. LISINOPRIL [Concomitant]
     Active Substance: LISINOPRIL
     Dosage: 30 MG BID
  6. MINOXIDIL [Concomitant]
     Active Substance: MINOXIDIL
     Dosage: 2.5 MG BID
  7. LASIX [Concomitant]
     Active Substance: FUROSEMIDE
     Dosage: 40 MG BID
  8. ATORVASTATIN [Concomitant]
     Active Substance: ATORVASTATIN
     Dosage: 40 MG DAILY
  9. CITALOPRAM [Concomitant]
     Active Substance: CITALOPRAM HYDROBROMIDE
     Dosage: 40 MG DAILY
  10. MODAFINIL [Concomitant]
     Active Substance: MODAFINIL
     Dosage: 100 MG DAILY
  11. TRESIBA [Concomitant]
     Active Substance: INSULIN DEGLUDEC
     Dosage: 40 UNITS DAILY
  12. OZEMPIC [Concomitant]
     Active Substance: SEMAGLUTIDE
     Dosage: 2 MG ONCE A WEEK

REACTIONS (8)
  - Blood creatinine increased [Recovering/Resolving]
  - Blood phosphorus increased [Not Recovered/Not Resolved]
  - Glomerular filtration rate decreased [Recovering/Resolving]
  - Cushingoid [Not Recovered/Not Resolved]
  - Abdominal distension [Not Recovered/Not Resolved]
  - Skin atrophy [Not Recovered/Not Resolved]
  - Weight increased [Unknown]
  - Skin striae [Unknown]

NARRATIVE: CASE EVENT DATE: 20220526
